FAERS Safety Report 4852067-4 (Version None)
Quarter: 2005Q4

REPORT INFORMATION
  Report Type: 
  Country: None (occurrence: None)
  Receive Date: 20051209
  Receipt Date: 20051130
  Transmission Date: 20060501
  Serious: Yes (Other)
  Sender: FDA-Public Use
  Company Number: 2005143404

PATIENT
  Age: 70 Year
  Sex: Female

DRUGS (9)
  1. MACUGEN [Suspect]
     Indication: MACULAR DEGENERATION
     Dosage: 0.3 MG (0.3 MG ONCE INTERVAL: ONE TIME ONLY) INTRAVENOUS
     Route: 042
     Dates: start: 20051012, end: 20051012
  2. HYDROCHLOROHIAZIDE            (HYDROCHLOROTHIAZIDE) [Concomitant]
  3. PLAVIX [Concomitant]
  4. ASPIRIN [Concomitant]
  5. OCUVITE (ASCORBIC ACID, RETINOL) [Concomitant]
  6. PLETAL [Concomitant]
  7. PRAVACHOL [Concomitant]
  8. NORVASC [Concomitant]
  9. TYLENOL ARTHRITIS (PARACETAMOL) [Concomitant]

REACTIONS (2)
  - THROAT TIGHTNESS [None]
  - URTICARIA GENERALISED [None]
